FAERS Safety Report 4421188-2 (Version None)
Quarter: 2004Q3

REPORT INFORMATION
  Report Type: 
  Country: None (occurrence: None)
  Receive Date: 20040804
  Receipt Date: 20040722
  Transmission Date: 20050211
  Serious: Yes (Other)
  Sender: FDA-Public Use
  Company Number: 2004050698

PATIENT
  Age: 50 Year
  Sex: Male

DRUGS (1)
  1. SULPERAZON (CEFOPERAZONE, SULBACTAM) [Suspect]
     Indication: INFECTION
     Dosage: 2 GRAM (1 D), INTRAVENOUS
     Route: 042
     Dates: start: 20040701

REACTIONS (1)
  - BLOOD BILIRUBIN INCREASED [None]
